FAERS Safety Report 17555746 (Version 2)
Quarter: 2020Q2

REPORT INFORMATION
  Report Type: Spontaneous
  Country: US (occurrence: US)
  Receive Date: 20200318
  Receipt Date: 20200512
  Transmission Date: 20200713
  Serious: Yes (Other)
  Sender: FDA-Public Use
  Company Number: US-PFIZER INC-2020112689

PATIENT
  Sex: Female

DRUGS (4)
  1. NIVESTYM [Suspect]
     Active Substance: FILGRASTIM-AAFI
     Indication: NEUTROPENIA
     Dosage: 480MCG/0.8ML, AS NEEDED
  2. NIVESTYM [Suspect]
     Active Substance: FILGRASTIM-AAFI
     Dosage: 480MCG/0.8ML, WEEKLY(1/WEEK)
  3. NIVESTYM [Suspect]
     Active Substance: FILGRASTIM-AAFI
     Dosage: 480MCG/0.8ML, (4 SHOTS AS A WEEKLY, ONE PER DAY INJECTION )
     Dates: start: 20200213, end: 20200216
  4. NIVESTYM [Suspect]
     Active Substance: FILGRASTIM-AAFI
     Dosage: 480MCG/0.8ML, (4 SHOTS AS A WEEKLY, ONE PER DAY INJECTION )
     Dates: start: 20200307, end: 20200310

REACTIONS (3)
  - Off label use [Unknown]
  - Neutrophil count decreased [Unknown]
  - Condition aggravated [Unknown]

NARRATIVE: CASE EVENT DATE: 20200301
